FAERS Safety Report 12426971 (Version 2)
Quarter: 2017Q2

REPORT INFORMATION
  Report Type: Spontaneous
  Country: JP (occurrence: JP)
  Receive Date: 20160601
  Receipt Date: 20170503
  Transmission Date: 20170830
  Serious: Yes (Death, Hospitalization, Other)
  Sender: FDA-Public Use
  Company Number: JP-GILEAD-2016-0215469

PATIENT
  Age: 63 Year
  Sex: Male
  Weight: 72.5 kg

DRUGS (8)
  1. MAINTATE [Concomitant]
     Active Substance: BISOPROLOL FUMARATE
     Indication: HYPERTENSION
     Dosage: 5 MG, UNK
     Route: 048
     Dates: start: 20150826
  2. REBETOL [Concomitant]
     Active Substance: RIBAVIRIN
     Indication: CHRONIC HEPATITIS C
     Dosage: 800 MG, UNK
     Route: 048
     Dates: start: 20150909, end: 20151115
  3. LANSOPRAZOLE. [Concomitant]
     Active Substance: LANSOPRAZOLE
     Indication: GASTROOESOPHAGEAL REFLUX DISEASE
     Dosage: 15 MG, UNK
     Route: 048
     Dates: start: 20150820
  4. LUPRAC [Concomitant]
     Active Substance: TORSEMIDE
     Indication: OEDEMA
     Dosage: 4 MG, UNK
     Route: 048
     Dates: start: 20150826
  5. CONIEL [Concomitant]
     Active Substance: BENIDIPINE HYDROCHLORIDE
     Indication: HYPERTENSION
     Dosage: 4 MG, UNK
     Route: 048
     Dates: start: 20150820
  6. SOVALDI [Suspect]
     Active Substance: SOFOSBUVIR
     Indication: CHRONIC HEPATITIS C
     Dosage: 400 MG, UNK
     Route: 048
     Dates: start: 20150909, end: 20151115
  7. LOSARTAN. [Concomitant]
     Active Substance: LOSARTAN
     Indication: HYPERTENSION
     Dosage: 25 MG, UNK
     Route: 048
     Dates: start: 20150826
  8. SHAKUYAKUKANZOTO [Concomitant]
     Active Substance: HERBALS
     Indication: MUSCLE SPASMS
     Dosage: 7.5 G, UNK
     Route: 048
     Dates: start: 20150826

REACTIONS (2)
  - Aortic dissection [Recovered/Resolved with Sequelae]
  - Hepatic failure [Fatal]

NARRATIVE: CASE EVENT DATE: 20151115
